FAERS Safety Report 7211170-4 (Version None)
Quarter: 2011Q1

REPORT INFORMATION
  Report Type: 
  Country: None (occurrence: None)
  Receive Date: 20110105
  Receipt Date: 20101213
  Transmission Date: 20110831
  Serious: Yes (Hospitalization)
  Sender: FDA-Public Use
  Company Number: JP-AMGEN-JPNCT2011000264

PATIENT

DRUGS (14)
  1. ALDACTONE [Concomitant]
     Dosage: UNK
     Route: 048
  2. PANITUMUMAB [Suspect]
     Dosage: 6 MG/KG, Q2WK
     Route: 041
     Dates: start: 20101020
  3. TAKEPRON OD TABLETS 15 [Concomitant]
     Dosage: UNK
     Route: 048
  4. MYSLEE [Concomitant]
     Dosage: UNK
     Route: 048
  5. LASIX [Concomitant]
     Dosage: UNK
     Route: 048
  6. OXINORM [Concomitant]
     Route: 048
  7. PANITUMUMAB [Suspect]
     Indication: COLORECTAL CANCER
     Dosage: 6 MG/KG, Q2WK
     Route: 041
     Dates: start: 20100623, end: 20100908
  8. LOCOID [Concomitant]
     Dosage: UNK
     Route: 062
  9. HIRUDOID SOFT [Concomitant]
     Dosage: UNK
     Route: 062
  10. LOXONIN [Concomitant]
     Dosage: UNK
     Route: 048
  11. CLARITHROMYCIN [Concomitant]
     Dosage: UNK
     Route: 048
  12. ERBITUX [Suspect]
     Indication: COLORECTAL CANCER
     Dosage: UNK
     Route: 041
     Dates: start: 20091101, end: 20100601
  13. OLMETEC [Concomitant]
     Dosage: UNK
     Route: 048
  14. DUROTEP MT PATCH [Concomitant]
     Dosage: UNK
     Route: 062

REACTIONS (3)
  - ENTEROCOLITIS [None]
  - SKIN FISSURES [None]
  - PARONYCHIA [None]
